FAERS Safety Report 6409423-2 (Version None)
Quarter: 2009Q4

REPORT INFORMATION
  Report Type: 
  Country: None (occurrence: None)
  Receive Date: 20091019
  Receipt Date: 20091019
  Transmission Date: 20100525
  Serious: Yes (Life-Threatening, Hospitalization)
  Sender: FDA-Public Use
  Company Number: None

PATIENT
  Age: 30 Year
  Sex: Female
  Weight: 127.0072 kg

DRUGS (2)
  1. BENICAR [Suspect]
     Indication: DIABETIC NEPHROPATHY
     Dosage: 1 DAILY
     Dates: start: 20090401, end: 20091015
  2. BENICAR [Suspect]
     Indication: PROPHYLAXIS
     Dosage: 1 DAILY
     Dates: start: 20090401, end: 20091015

REACTIONS (1)
  - ANGIOEDEMA [None]
